FAERS Safety Report 17157113 (Version 1)
Quarter: 2019Q4

REPORT INFORMATION
  Report Type: Spontaneous
  Country: AT (occurrence: AT)
  Receive Date: 20191216
  Receipt Date: 20191216
  Transmission Date: 20200122
  Serious: Yes (Other)
  Sender: FDA-Public Use
  Company Number: AT-BAXTER-2019BAX025607

PATIENT
  Sex: Male
  Weight: 82 kg

DRUGS (7)
  1. REVLIMID [Suspect]
     Active Substance: LENALIDOMIDE
     Dosage: 6 CYCLES R2-COMP
     Route: 065
     Dates: start: 20171114, end: 20180306
  2. ENDOXAN ^BAXTER^ 1G TROCKENSTECHAMPULLE [Suspect]
     Active Substance: CYCLOPHOSPHAMIDE
     Indication: DIFFUSE LARGE B-CELL LYMPHOMA
     Dosage: 1 CYCLE R-COMP, 6 CYCLES R2-COMP
     Route: 065
     Dates: start: 20171023, end: 20180306
  3. REVLIMID [Suspect]
     Active Substance: LENALIDOMIDE
     Indication: DIFFUSE LARGE B-CELL LYMPHOMA
     Dosage: REVLIMID MAINTENANCE
     Route: 065
     Dates: start: 20180518, end: 201807
  4. RITUXIMAB. [Suspect]
     Active Substance: RITUXIMAB
     Indication: DIFFUSE LARGE B-CELL LYMPHOMA
     Dosage: 1 CYCLE R-COMP, 6 CYCLES R-COMP
     Route: 065
     Dates: start: 20171023, end: 20180306
  5. DOXIL [Suspect]
     Active Substance: DOXORUBICIN HYDROCHLORIDE
     Indication: DIFFUSE LARGE B-CELL LYMPHOMA
     Dosage: 1 CYCLE R-COMP, 6 CYCLES R2-COMP
     Route: 065
     Dates: start: 20171023, end: 20180306
  6. PREDNISOLONE. [Suspect]
     Active Substance: PREDNISOLONE
     Indication: DIFFUSE LARGE B-CELL LYMPHOMA
     Dosage: 1 CYCLE R-COMP, 6 CYCLES R2-COMP
     Route: 065
     Dates: start: 20171023, end: 20180306
  7. VINCRISTINE [Suspect]
     Active Substance: VINCRISTINE
     Indication: DIFFUSE LARGE B-CELL LYMPHOMA
     Dosage: 1 CYCLE R-COMP, 6 CYCLES R2-COMP
     Route: 065
     Dates: start: 20171023, end: 20180306

REACTIONS (1)
  - Coronary artery disease [Unknown]
